FAERS Safety Report 4475166-8 (Version None)
Quarter: 2004Q4

REPORT INFORMATION
  Report Type: 
  Country: None (occurrence: None)
  Receive Date: 20041013
  Receipt Date: 20041013
  Transmission Date: 20050328
  Serious: Yes (Hospitalization)
  Sender: FDA-Public Use
  Company Number: None

PATIENT
  Age: 17 Year
  Sex: Male

DRUGS (12)
  1. TRIMETHOPRIM-SULFAMETHOXAZOLE [Suspect]
  2. NORVASC [Concomitant]
  3. CALCITRIOL -CALCIJEX [Concomitant]
  4. CALCIUM ACETATE -PHOSLO- [Concomitant]
  5. TRIMETHOPRIM-SULFAMETHOXAZOLE [Concomitant]
  6. MINOXIDIL -LONITEN- [Concomitant]
  7. PREVACID [Concomitant]
  8. PREDNISONE -DELTASONE- [Concomitant]
  9. DILANTIN [Concomitant]
  10. FERROUS SULFATE TAB [Concomitant]
  11. EPOETIN ALFA -PROCRIT- [Concomitant]
  12. MULTIPLE VITAMIN [Concomitant]

REACTIONS (2)
  - BONE MARROW DEPRESSION [None]
  - FEBRILE NEUTROPENIA [None]
